APPROVED DRUG PRODUCT: FYCOMPA
Active Ingredient: PERAMPANEL
Strength: 12MG
Dosage Form/Route: TABLET;ORAL
Application: N202834 | Product #006 | TE Code: AB
Applicant: CATALYST PHARMACEUTICALS INC
Approved: Oct 22, 2012 | RLD: Yes | RS: Yes | Type: RX

PATENTS:
Patent 8772497 | Expires: Jul 1, 2026